FAERS Safety Report 19433628 (Version 1)
Quarter: 2021Q2

REPORT INFORMATION
  Report Type: Spontaneous
  Country: CN (occurrence: CN)
  Receive Date: 20210618
  Receipt Date: 20210618
  Transmission Date: 20210717
  Serious: Yes (Other)
  Sender: FDA-Public Use
  Company Number: CN-SA-2021SA201150

PATIENT
  Age: 63 Year
  Sex: Female

DRUGS (2)
  1. OXALIPLATIN. [Suspect]
     Active Substance: OXALIPLATIN
     Indication: CARDIAC NEOPLASM MALIGNANT
  2. FLUOROURACIL. [Suspect]
     Active Substance: FLUOROURACIL
     Indication: CARDIAC NEOPLASM MALIGNANT

REACTIONS (6)
  - Abdominal pain [Recovered/Resolved]
  - Diarrhoea [Recovering/Resolving]
  - Intestinal obstruction [Recovered/Resolved]
  - Vomiting [Recovered/Resolved]
  - Peripheral paralysis [Recovering/Resolving]
  - Nausea [Recovered/Resolved]
